FAERS Safety Report 5528565-7 (Version None)
Quarter: 2007Q4

REPORT INFORMATION
  Report Type: 
  Country: None (occurrence: None)
  Receive Date: 20071123
  Receipt Date: 20071025
  Transmission Date: 20080405
  Serious: Yes (Life-Threatening, Hospitalization)
  Sender: FDA-Public Use
  Company Number: 2007S1011079

PATIENT
  Age: 69 Year
  Sex: Male

DRUGS (10)
  1. METFORMIN HCL [Suspect]
     Indication: DIABETES MELLITUS
     Dosage: 1 DF;ORAL;DAILY  : 1 DF;ORAL;TWICE A DAY: 1 DF;ORAL;3 TIMES A DAY : 2000 MG;ORAL
     Route: 048
     Dates: start: 20070101
  2. METFORMIN HCL [Suspect]
     Indication: DIABETES MELLITUS
     Dosage: 1 DF;ORAL;DAILY  : 1 DF;ORAL;TWICE A DAY: 1 DF;ORAL;3 TIMES A DAY : 2000 MG;ORAL
     Route: 048
     Dates: start: 20070301
  3. METFORMIN HCL [Suspect]
     Indication: DIABETES MELLITUS
     Dosage: 1 DF;ORAL;DAILY  : 1 DF;ORAL;TWICE A DAY: 1 DF;ORAL;3 TIMES A DAY : 2000 MG;ORAL
     Route: 048
     Dates: start: 20070917
  4. METFORMIN HCL [Suspect]
     Indication: DIABETES MELLITUS
     Dosage: 1 DF;ORAL;DAILY  : 1 DF;ORAL;TWICE A DAY: 1 DF;ORAL;3 TIMES A DAY : 2000 MG;ORAL
     Route: 048
     Dates: start: 20070927
  5. ASPIRIN [Concomitant]
  6. ATORVASTATIN [Concomitant]
  7. BISOPROLOL FUMARATE [Concomitant]
  8. GLICLAZIDE [Concomitant]
  9. GTN (GLYCERYL TRINITRATE) [Concomitant]
  10. RAMIPRIL [Concomitant]

REACTIONS (9)
  - ABDOMINAL PAIN [None]
  - AMNESIA [None]
  - ANOREXIA [None]
  - CARDIAC FLUTTER [None]
  - CHEST DISCOMFORT [None]
  - DYSPNOEA [None]
  - FLATULENCE [None]
  - MALAISE [None]
  - PALLOR [None]
